FAERS Safety Report 6796257-2 (Version None)
Quarter: 2010Q2

REPORT INFORMATION
  Report Type: 
  Country: None (occurrence: None)
  Receive Date: 20100624
  Receipt Date: 20100624
  Transmission Date: 20101027
  Serious: No
  Sender: FDA-Public Use
  Company Number: None

PATIENT
  Age: 65 Year
  Sex: Male
  Weight: 75 kg

DRUGS (1)
  1. VANCOMYCIN [Suspect]
     Dosage: 1250 MG EVERY DAY IV
     Route: 042
     Dates: start: 20100501, end: 20100502

REACTIONS (2)
  - RASH [None]
  - RED MAN SYNDROME [None]
